FAERS Safety Report 16697517 (Version 2)
Quarter: 2019Q3

REPORT INFORMATION
  Report Type: Spontaneous
  Country: LT (occurrence: LT)
  Receive Date: 20190813
  Receipt Date: 20190930
  Transmission Date: 20191004
  Serious: Yes (Hospitalization)
  Sender: FDA-Public Use
  Company Number: PHHY2019LT172190

PATIENT
  Age: 52 Year
  Sex: Female

DRUGS (1)
  1. AMOKSIKLAV [Suspect]
     Active Substance: AMOXICILLIN\CLAVULANATE POTASSIUM
     Indication: EVIDENCE BASED TREATMENT
     Dosage: 1.2 G, QID
     Route: 042

REACTIONS (2)
  - Leukocytosis [Unknown]
  - Hyperhidrosis [Unknown]
